FAERS Safety Report 11014615 (Version 2)
Quarter: 2015Q2

REPORT INFORMATION
  Report Type: Spontaneous
  Country: US (occurrence: US)
  Receive Date: 20150412
  Receipt Date: 20150525
  Transmission Date: 20150821
  Serious: No
  Sender: FDA-Public Use
  Company Number: US-JNJFOC-20131011114

PATIENT
  Sex: Male

DRUGS (2)
  1. ULTRAM [Suspect]
     Active Substance: TRAMADOL HYDROCHLORIDE
     Indication: PRODUCT USED FOR UNKNOWN INDICATION
     Dosage: 2 PER 1 DAY
     Route: 048
  2. ULTRAM ER [Suspect]
     Active Substance: TRAMADOL HYDROCHLORIDE
     Indication: PRODUCT USED FOR UNKNOWN INDICATION
     Dosage: 100 MG DAILY
     Route: 048
     Dates: start: 2013

REACTIONS (11)
  - Dry mouth [Unknown]
  - Drug diversion [Unknown]
  - Pain [Unknown]
  - Pruritus [Unknown]
  - Scratch [Unknown]
  - Traumatic haemorrhage [Unknown]
  - Chest pain [Unknown]
  - Constipation [Unknown]
  - Drug ineffective [Unknown]
  - Somnolence [Unknown]
  - Hunger [Unknown]

NARRATIVE: CASE EVENT DATE: 2013
